FAERS Safety Report 20451714 (Version 5)
Quarter: 2023Q4

REPORT INFORMATION
  Report Type: Spontaneous
  Country: US (occurrence: US)
  Receive Date: 20220209
  Receipt Date: 20231130
  Transmission Date: 20240110
  Serious: Yes (Other)
  Sender: FDA-Public Use
  Company Number: US-PFIZER INC-2021259758

PATIENT
  Age: 66 Year
  Sex: Female
  Weight: 50.8 kg

DRUGS (1)
  1. PREMARIN [Suspect]
     Active Substance: ESTROGENS, CONJUGATED
     Indication: Osteoporosis
     Dosage: 0.625 MG

REACTIONS (8)
  - Peripheral artery thrombosis [Unknown]
  - Dyspnoea [Unknown]
  - Illness [Unknown]
  - COVID-19 [Unknown]
  - Hot flush [Unknown]
  - Insomnia [Unknown]
  - Confusional state [Unknown]
  - Off label use [Unknown]
